FAERS Safety Report 5274016-X (Version None)
Quarter: 2007Q1

REPORT INFORMATION
  Report Type: 
  Country: None (occurrence: None)
  Receive Date: 20070323
  Receipt Date: 20070314
  Transmission Date: 20070707
  Serious: Yes (Other)
  Sender: FDA-Public Use
  Company Number: BE-GLAXOSMITHKLINE-B0463102A

PATIENT
  Sex: Male

DRUGS (1)
  1. AVANDIA [Suspect]
     Indication: PROPHYLAXIS
     Route: 048
     Dates: start: 20060411, end: 20070313

REACTIONS (3)
  - COLOUR BLINDNESS [None]
  - EYE DISORDER [None]
  - MACULAR OEDEMA [None]
